FAERS Safety Report 7634430-1 (Version None)
Quarter: 2011Q3

REPORT INFORMATION
  Report Type: 
  Country: None (occurrence: None)
  Receive Date: 20110725
  Receipt Date: 20110713
  Transmission Date: 20111222
  Serious: Yes (Other)
  Sender: FDA-Public Use
  Company Number: PHHY2009JP42158

PATIENT
  Sex: Male

DRUGS (6)
  1. TASIGNA [Suspect]
     Dosage: 400 MG/DAY
     Route: 048
     Dates: start: 20090724, end: 20090828
  2. TASIGNA [Suspect]
     Indication: CHRONIC MYELOID LEUKAEMIA
     Dosage: 800 MG/DAY
     Route: 048
     Dates: start: 20090515, end: 20090711
  3. TASIGNA [Suspect]
     Dosage: 800 MG/DAY
     Route: 048
     Dates: start: 20090829, end: 20090911
  4. SPRYCEL [Concomitant]
     Indication: CHRONIC MYELOID LEUKAEMIA
     Dosage: 140 MG
     Route: 048
     Dates: start: 20090409, end: 20090513
  5. HYDREA [Concomitant]
     Indication: CHRONIC MYELOID LEUKAEMIA
     Dosage: 2000 MG
     Route: 048
     Dates: start: 20080610, end: 20080701
  6. SPRYCEL [Concomitant]
     Dosage: 100 MG
     Route: 048
     Dates: start: 20090409, end: 20090513

REACTIONS (2)
  - CHRONIC MYELOID LEUKAEMIA [None]
  - HAEMOGLOBIN DECREASED [None]
